FAERS Safety Report 7279765-X (Version None)
Quarter: 2011Q1

REPORT INFORMATION
  Report Type: 
  Country: None (occurrence: None)
  Receive Date: 20110208
  Receipt Date: 20110125
  Transmission Date: 20110831
  Serious: Yes (Hospitalization)
  Sender: FDA-Public Use
  Company Number: GB-JNJFOC-20110107020

PATIENT
  Age: 50 Year
  Sex: Female

DRUGS (3)
  1. PARACETAMOL [Suspect]
     Indication: PRODUCT USED FOR UNKNOWN INDICATION
     Route: 048
  2. SALICYLATES NOS [Suspect]
     Indication: PRODUCT USED FOR UNKNOWN INDICATION
  3. PARACETAMOL [Suspect]
     Route: 048

REACTIONS (6)
  - HYPOTENSION [None]
  - COMA [None]
  - MULTIPLE DRUG OVERDOSE INTENTIONAL [None]
  - HEPATORENAL FAILURE [None]
  - METABOLIC ACIDOSIS [None]
  - HYPOGLYCAEMIA [None]
